FAERS Safety Report 16452446 (Version 1)
Quarter: 2019Q2

REPORT INFORMATION
  Report Type: Report from Study
  Country: AT (occurrence: AT)
  Receive Date: 20190619
  Receipt Date: 20190619
  Transmission Date: 20190711
  Serious: Yes (Death)
  Sender: FDA-Public Use
  Company Number: AT-PFIZER INC-2019261330

PATIENT

DRUGS (10)
  1. VINCRISTINE [Suspect]
     Active Substance: VINCRISTINE
     Indication: NON-HODGKIN^S LYMPHOMA
     Dosage: 1.4 MG/M2, CYCLIC (D 1+8; REPEATED CYCLES WERE EVERY TWENTY-EIGHTH DAY)
     Route: 040
  2. CYCLOPHOSPHAMIDE. [Suspect]
     Active Substance: CYCLOPHOSPHAMIDE
     Indication: NON-HODGKIN^S LYMPHOMA
     Dosage: 750 MG/M2, CYCLIC (IN 30 MIN, DAY 1; REPEATED CYCLES WERE EVERY TWENTY-EIGHTH DAY)
     Route: 042
  3. DEXAMETHASONE. [Suspect]
     Active Substance: DEXAMETHASONE
     Indication: NON-HODGKIN^S LYMPHOMA
     Dosage: 40 MG/M2, CYCLIC (DAY 15-19)
     Route: 048
  4. EPIRUBICIN HCL [Suspect]
     Active Substance: EPIRUBICIN HYDROCHLORIDE
     Indication: NON-HODGKIN^S LYMPHOMA
     Dosage: 70 MG/M2, CYCLIC (IV IN 2 HOURS, DAY1; REPEATED CYCLES WERE EVERY TWENTY-EIGHTH DAY)
     Route: 042
  5. METHOTREXATE SODIUM. [Suspect]
     Active Substance: METHOTREXATE SODIUM
     Indication: NON-HODGKIN^S LYMPHOMA
     Dosage: 800 MG/M2, CYCLIC (IN 4 HOURS DAY 22; REPEATED CYCLES WERE EVERY TWENTY-EIGHTH DAY)
     Route: 042
  6. IFOSFAMIDE. [Suspect]
     Active Substance: IFOSFAMIDE
     Indication: NON-HODGKIN^S LYMPHOMA
     Dosage: 2000 MG/M2, CYCLIC (IN 30 MIN, DAY 15-17; REPEATED CYCLES WERE EVERY TWENTY-EIGHTH DAY)
     Route: 042
  7. CALCIUM FOLINATE [Suspect]
     Active Substance: LEUCOVORIN CALCIUM
     Indication: NON-HODGKIN^S LYMPHOMA
     Dosage: 15 MG/M2, CYCLIC (EVERY 6 HOURS, D 23-25; REPEATED CYCLES WERE EVERY TWENTY-EIGHTH DAY)
     Route: 048
  8. PREDNISOLONE. [Suspect]
     Active Substance: PREDNISOLONE
     Indication: NON-HODGKIN^S LYMPHOMA
     Dosage: 100 MG/M2, CYCLIC (DAY 1-5; REPEATED CYCLES WERE EVERY TWENTY-EIGHTH DAY)
     Route: 048
  9. MESNA. [Suspect]
     Active Substance: MESNA
     Indication: NON-HODGKIN^S LYMPHOMA
     Dosage: 400 MG/M2, CYCLIC (IV PUSH AT 0, 4, AND 8 HOURS AFTER IFOSFAMIDE, D 15-17)
     Route: 040
  10. ETOPOSIDE. [Suspect]
     Active Substance: ETOPOSIDE
     Indication: NON-HODGKIN^S LYMPHOMA
     Dosage: 100 MG/M2, CYCLIC (IN 2 HOURS, DAY 15-17; REPEATED CYCLES WERE EVERY TWENTY-EIGHTH DAY)
     Route: 042

REACTIONS (1)
  - Neutropenic infection [Fatal]
